FAERS Safety Report 5652194-8 (Version None)
Quarter: 2008Q1

REPORT INFORMATION
  Report Type: 
  Country: None (occurrence: None)
  Receive Date: 20080131
  Receipt Date: 20071102
  Transmission Date: 20080703
  Serious: No
  Sender: FDA-Public Use
  Company Number: US200711000892

PATIENT
  Age: 58 Year
  Sex: Female
  Weight: 163.3 kg

DRUGS (18)
  1. BYETTA [Suspect]
     Indication: TYPE 2 DIABETES MELLITUS
     Dosage: 5 UG, 2/D, SUBCUTANEOUS 10 UG, 2/D, SUBCUTANEOUS
     Route: 058
     Dates: start: 20070801, end: 20071025
  2. BYETTA [Suspect]
     Indication: TYPE 2 DIABETES MELLITUS
     Dosage: 5 UG, 2/D, SUBCUTANEOUS 10 UG, 2/D, SUBCUTANEOUS
     Route: 058
     Dates: start: 20071026
  3. LANTUS [Concomitant]
  4. GLYBURIDE [Concomitant]
  5. NEURONTIN [Concomitant]
  6. ATENOLOL [Concomitant]
  7. LORTAB [Concomitant]
  8. POTASSIUM CHLORIDE [Concomitant]
  9. LODRANE (BROMPHENIRAMINE MALEATE, PSEUDOEPHEDRINE HYDROCHLORIDE) [Concomitant]
  10. . [Concomitant]
  11. ALLOPURINOL [Concomitant]
  12. LISINOPRIL [Concomitant]
  13. TRENTAL [Concomitant]
  14. CARISOPRODOL [Concomitant]
  15. SUCRALFATE [Concomitant]
  16. LASIX [Concomitant]
  17. PREVACID [Concomitant]
  18. CLONAZEPAM [Concomitant]

REACTIONS (3)
  - CONSTIPATION [None]
  - HAEMATOCHEZIA [None]
  - NAUSEA [None]
